FAERS Safety Report 8326916-1 (Version None)
Quarter: 2012Q2

REPORT INFORMATION
  Report Type: 
  Country: None (occurrence: None)
  Receive Date: 20120501
  Receipt Date: 20120424
  Transmission Date: 20120825
  Serious: Yes (Death, Other)
  Sender: FDA-Public Use
  Company Number: CZ-CELGENEUS-217-21880-12012363

PATIENT
  Age: 79 Year
  Sex: Male
  Weight: 83 kg

DRUGS (21)
  1. LANSOPROL [Concomitant]
     Dosage: 15 MILLIGRAM
     Route: 048
     Dates: start: 20110206
  2. REVLIMID [Suspect]
     Indication: MULTIPLE MYELOMA
     Route: 048
     Dates: start: 20110207, end: 20110319
  3. CARFILZOMIB [Suspect]
     Route: 065
     Dates: start: 20110307, end: 20111227
  4. SODIUM DIHYDRATE PHOSPHATE [Concomitant]
     Route: 041
     Dates: start: 20111122, end: 20111228
  5. ZOMETA [Concomitant]
     Route: 041
     Dates: start: 20080609
  6. REVLIMID [Suspect]
     Dosage: 10 MILLIGRAM
     Route: 048
     Dates: start: 20110919, end: 20110925
  7. REVLIMID [Suspect]
     Dosage: 5 MILLIGRAM
     Route: 048
     Dates: start: 20111017, end: 20111030
  8. CARFILZOMIB [Suspect]
     Indication: MULTIPLE MYELOMA
     Dosage: 41 MILLIGRAM
     Route: 065
     Dates: start: 20110207, end: 20110208
  9. ZOFRAN [Concomitant]
     Route: 041
     Dates: start: 20110404
  10. REVLIMID [Suspect]
     Dosage: 15 MILLIGRAM
     Route: 048
     Dates: start: 20110808, end: 20110808
  11. CARFILZOMIB [Suspect]
     Route: 065
     Dates: start: 20110214, end: 20110222
  12. DEXAMETHASONE [Suspect]
     Indication: MULTIPLE MYELOMA
     Route: 065
     Dates: start: 20110207, end: 20120103
  13. HERPESIN [Concomitant]
     Indication: ANTIVIRAL PROPHYLAXIS
     Dosage: 400 MILLIGRAM
     Route: 048
     Dates: start: 20110206
  14. EPOGEN [Concomitant]
     Route: 058
     Dates: start: 20110712, end: 20111228
  15. EUPHYLIN [Concomitant]
     Indication: CHRONIC OBSTRUCTIVE PULMONARY DISEASE
     Dosage: 400 MILLIGRAM
     Route: 048
     Dates: start: 20110321
  16. FUROSEMIDE [Concomitant]
     Dosage: 20 MILLIGRAM
     Route: 048
     Dates: start: 20111114
  17. FILGRASTIM [Concomitant]
     Indication: NEUTROPENIA
     Route: 058
     Dates: start: 20110906
  18. REVLIMID [Suspect]
     Route: 048
     Dates: start: 20110404, end: 20110711
  19. CARFILZOMIB [Suspect]
     Route: 065
     Dates: start: 20111228, end: 20111228
  20. CALCIUM CARBONATE [Concomitant]
     Indication: MULTIPLE MYELOMA
     Dosage: 4 DOSAGE FORMS
     Route: 048
     Dates: start: 20110418
  21. ZYRTEC [Concomitant]
     Dosage: 10 MILLIGRAM
     Route: 048
     Dates: start: 20110919

REACTIONS (1)
  - ACUTE MYELOID LEUKAEMIA [None]
